FAERS Safety Report 19037924 (Version 1)
Quarter: 2021Q1

REPORT INFORMATION
  Report Type: Spontaneous
  Country: US (occurrence: US)
  Receive Date: 20210322
  Receipt Date: 20210322
  Transmission Date: 20210420
  Serious: No
  Sender: FDA-Public Use
  Company Number: US-ALK-ABELLO A/S-2021AA000811

PATIENT

DRUGS (1)
  1. TAE BULK 553 (CANIS LUPUS FAMILIARIS) [Suspect]
     Active Substance: CANIS LUPUS FAMILIARIS SKIN
     Indication: ALLERGY TO ANIMAL
     Dosage: UNK

REACTIONS (1)
  - Condition aggravated [Unknown]
